FAERS Safety Report 9640504 (Version 1)
Quarter: 2013Q4

REPORT INFORMATION
  Report Type: Report from Study
  Country: US (occurrence: US)
  Receive Date: 20131023
  Receipt Date: 20131023
  Transmission Date: 20140711
  Serious: No
  Sender: FDA-Public Use
  Company Number: US-ABBVIE-13P-163-1113154-00

PATIENT
  Age: 30 Year
  Sex: Female

DRUGS (3)
  1. LUPRON DEPOT [Suspect]
     Indication: ENDOMETRIOSIS
     Dates: start: 200610, end: 200704
  2. LUPRON DEPOT [Suspect]
     Dates: start: 20130605
  3. IRON TRANSFUSIONS [Concomitant]
     Indication: ANAEMIA
     Dosage: PERIODICALLY

REACTIONS (7)
  - Hot flush [Recovered/Resolved]
  - Mood swings [Recovered/Resolved]
  - Migraine [Not Recovered/Not Resolved]
  - Endometriosis [Unknown]
  - Endometriosis [Unknown]
  - Endometriosis [Unknown]
  - Endometriosis [Unknown]
